FAERS Safety Report 7042167-5 (Version None)
Quarter: 2010Q4

REPORT INFORMATION
  Report Type: 
  Country: None (occurrence: None)
  Receive Date: 20101013
  Receipt Date: 20100616
  Transmission Date: 20110411
  Serious: No
  Sender: FDA-Public Use
  Company Number: US-ASTRAZENECA-2010SE28145

PATIENT
  Sex: Male
  Weight: 80.7 kg

DRUGS (2)
  1. SYMBICORT [Suspect]
     Indication: BRONCHITIS CHRONIC
     Route: 055
     Dates: start: 20100101, end: 20100616
  2. SYMBICORT [Suspect]
     Indication: CHRONIC OBSTRUCTIVE PULMONARY DISEASE
     Route: 055
     Dates: start: 20100101, end: 20100616

REACTIONS (1)
  - TONGUE DISORDER [None]
